FAERS Safety Report 9734220 (Version 1)
Quarter: 2013Q4

REPORT INFORMATION
  Report Type: Spontaneous
  Country: US (occurrence: US)
  Receive Date: 20131205
  Receipt Date: 20131205
  Transmission Date: 20140711
  Serious: Yes (Death, Other)
  Sender: FDA-Public Use
  Company Number: US-GILEAD-2013-0089168

PATIENT
  Age: 70 Year
  Sex: Female

DRUGS (14)
  1. LETAIRIS [Suspect]
     Indication: PRODUCT USED FOR UNKNOWN INDICATION
     Route: 048
     Dates: start: 20121029, end: 20131030
  2. ACETAZOLAMIDE [Concomitant]
  3. ADCIRCA [Concomitant]
  4. GUAIFENESIN [Concomitant]
  5. LORAZEPAM [Concomitant]
  6. ZOLOFT [Concomitant]
  7. NAPROSYN                           /00256201/ [Concomitant]
  8. PREDNISONE [Concomitant]
  9. VITAMIN C                          /00008001/ [Concomitant]
  10. MULTIVITAMIN                       /07504101/ [Concomitant]
  11. FUROSEMIDE [Concomitant]
  12. ZEBETA [Concomitant]
  13. TOVIAZ [Concomitant]
  14. EVOXAC [Concomitant]

REACTIONS (1)
  - Death [Fatal]
